FAERS Safety Report 12855442 (Version 2)
Quarter: 2016Q4

REPORT INFORMATION
  Report Type: Report from Study
  Country: KR (occurrence: KR)
  Receive Date: 20161017
  Receipt Date: 20161018
  Transmission Date: 20170207
  Serious: Yes (Other)
  Sender: FDA-Public Use
  Company Number: PHHY2016KR140891

PATIENT
  Age: 73 Year
  Sex: Female

DRUGS (6)
  1. ALBIS [Concomitant]
     Active Substance: BISMUTH SUBCITRATE\RANITIDINE HYDROCHLORIDE\SUCRALFATE
     Indication: PROPHYLAXIS
     Dosage: 2 DF (2T), UNK
     Route: 048
     Dates: start: 20151224
  2. TASIGNA [Suspect]
     Active Substance: NILOTINIB
     Indication: CHRONIC MYELOID LEUKAEMIA
     Dosage: 600 MG, QD
     Route: 048
     Dates: start: 20160310, end: 20160421
  3. TASIGNA [Suspect]
     Active Substance: NILOTINIB
     Dosage: 600 MG, QD
     Route: 048
     Dates: start: 20160428
  4. TORSEM [Concomitant]
     Indication: ARRHYTHMIA
     Dosage: 5 MG, UNK
     Route: 048
     Dates: start: 20151224
  5. MEVALOTIN [Concomitant]
     Active Substance: PRAVASTATIN SODIUM
     Indication: ARRHYTHMIA
     Dosage: 10 MG, UNK
     Route: 048
     Dates: start: 20151224
  6. DILATREND [Concomitant]
     Active Substance: CARVEDILOL
     Indication: ARRHYTHMIA
     Dosage: 12.5 MG, UNK
     Route: 048
     Dates: start: 20151224

REACTIONS (1)
  - Thrombocytopenia [Recovered/Resolved]

NARRATIVE: CASE EVENT DATE: 20160421
